FAERS Safety Report 6290147-X (Version None)
Quarter: 2009Q3

REPORT INFORMATION
  Report Type: 
  Country: None (occurrence: None)
  Receive Date: 20090730
  Receipt Date: 20081210
  Transmission Date: 20100115
  Serious: No
  Sender: FDA-Public Use
  Company Number: US-BRISTOL-MYERS SQUIBB COMPANY-14439392

PATIENT
  Age: 75 Year
  Sex: Male

DRUGS (5)
  1. WARFARIN SODIUM [Suspect]
     Route: 048
  2. HUMIRA [Interacting]
     Indication: PSORIASIS
     Dosage: HUMIRA 40MG/0.8ML PEN
     Route: 058
     Dates: start: 20080702
  3. ENSURE [Concomitant]
     Indication: MEDICAL DIET
     Route: 048
  4. CENTRUM SILVER [Concomitant]
     Route: 048
  5. CORTISONE [Concomitant]
     Indication: ACNE
     Route: 061

REACTIONS (7)
  - ACNE [None]
  - DRUG INTERACTION [None]
  - INCREASED TENDENCY TO BRUISE [None]
  - PAIN OF SKIN [None]
  - SKIN LACERATION [None]
  - SKIN PAPILLOMA [None]
  - WOUND HAEMORRHAGE [None]
